FAERS Safety Report 5296512-1 (Version None)
Quarter: 2007Q2

REPORT INFORMATION
  Report Type: 
  Country: None (occurrence: None)
  Receive Date: 20070413
  Receipt Date: 20070404
  Transmission Date: 20071010
  Serious: Yes (Other)
  Sender: FDA-Public Use
  Company Number: US-ROCHE-489583

PATIENT
  Age: 58 Year
  Sex: Female
  Weight: 58.1 kg

DRUGS (9)
  1. BONIVA [Suspect]
     Indication: BONE DENSITY DECREASED
     Route: 048
     Dates: start: 20070102, end: 20070202
  2. WELCHOL [Concomitant]
  3. VITAMIN D [Concomitant]
  4. TOPROL-XL [Concomitant]
  5. HYDROCHLOROTHIAZIDE [Concomitant]
  6. GREEN TEA EXTRACT [Concomitant]
  7. GLUCOSAMINE SULFATE/CHONDROITIN [Concomitant]
  8. CALCIUM NOS [Concomitant]
  9. SUPPLEMENTS [Concomitant]

REACTIONS (11)
  - CHEST PAIN [None]
  - DYSPHAGIA [None]
  - DYSPNOEA [None]
  - HEART RATE INCREASED [None]
  - HYPERSENSITIVITY [None]
  - LIP SWELLING [None]
  - NAUSEA [None]
  - OEDEMA PERIPHERAL [None]
  - PHARYNGEAL OEDEMA [None]
  - SWOLLEN TONGUE [None]
  - URTICARIA [None]
